FAERS Safety Report 14413023 (Version 3)
Quarter: 2018Q1

REPORT INFORMATION
  Report Type: Report from Study
  Country: US (occurrence: US)
  Receive Date: 20180119
  Receipt Date: 20180123
  Transmission Date: 20180509
  Serious: Yes (Hospitalization)
  Sender: FDA-Public Use
  Company Number: US-JNJFOC-20180122122

PATIENT
  Age: 12 Year
  Sex: Female
  Weight: 39.7 kg

DRUGS (6)
  1. HYDROCORTISONE. [Concomitant]
     Active Substance: HYDROCORTISONE
     Route: 065
  2. PREDNISONE. [Concomitant]
     Active Substance: PREDNISONE
     Route: 065
  3. REMICADE [Suspect]
     Active Substance: INFLIXIMAB
     Indication: CROHN^S DISEASE
     Route: 042
     Dates: start: 20150825
  4. STELARA [Concomitant]
     Active Substance: USTEKINUMAB
     Route: 058
     Dates: start: 20180116
  5. BUDESONIDE. [Concomitant]
     Active Substance: BUDESONIDE
     Route: 065
  6. STELARA [Concomitant]
     Active Substance: USTEKINUMAB
     Route: 058
     Dates: start: 20171128

REACTIONS (1)
  - Crohn^s disease [Recovered/Resolved]

NARRATIVE: CASE EVENT DATE: 20180112
